FAERS Safety Report 8380828-6 (Version None)
Quarter: 2012Q2

REPORT INFORMATION
  Report Type: 
  Country: None (occurrence: None)
  Receive Date: 20120523
  Receipt Date: 20120509
  Transmission Date: 20120825
  Serious: Yes (Hospitalization, Other)
  Sender: FDA-Public Use
  Company Number: JP-ROCHE-1061519

PATIENT
  Sex: Female
  Weight: 43 kg

DRUGS (9)
  1. OXALIPLATIN [Suspect]
     Indication: RECTAL CANCER RECURRENT
     Route: 041
     Dates: start: 20120416, end: 20120416
  2. POTASSIUM L-ASPARTATE [Concomitant]
     Dosage: DOSAGE IS UNCERTAIN.
     Route: 048
  3. DIAMOX [Concomitant]
     Dosage: DOSAGE IS UNCERTAIN.
     Route: 048
  4. ALOXI [Concomitant]
     Indication: PROPHYLAXIS OF NAUSEA AND VOMITING
     Dosage: DOSAGE IS UNCERTAIN.
     Route: 041
  5. XELODA [Suspect]
     Indication: RECTAL CANCER RECURRENT
     Route: 048
     Dates: start: 20120416, end: 20120419
  6. DEXAMETHASONE SODIUM PHOSPHATE [Concomitant]
     Indication: PROPHYLAXIS OF NAUSEA AND VOMITING
     Dosage: DOSAGE IS UNCERTAIN. 5W/V
     Route: 041
  7. SOLANTAL [Concomitant]
     Dosage: DOSAGE IS UNCERTAIN.
     Route: 048
  8. ASPIRIN [Concomitant]
     Route: 048
  9. ASPIRIN [Concomitant]
     Dosage: DOSAGE IS UNCERTAIN.
     Route: 048

REACTIONS (5)
  - LEUKOENCEPHALOPATHY [None]
  - LOSS OF CONSCIOUSNESS [None]
  - CONTUSION [None]
  - FALL [None]
  - TRAUMATIC INTRACRANIAL HAEMORRHAGE [None]
